FAERS Safety Report 19386174 (Version 2)
Quarter: 2021Q2

REPORT INFORMATION
  Report Type: Spontaneous
  Country: US (occurrence: US)
  Receive Date: 20210608
  Receipt Date: 20210618
  Transmission Date: 20210717
  Serious: Yes (Life-Threatening, Hospitalization, Other)
  Sender: FDA-Public Use
  Company Number: US-AUROBINDO-AUR-APL-2021-023518

PATIENT
  Age: 5 Month
  Sex: Male

DRUGS (1)
  1. FLECAINIDE [Suspect]
     Active Substance: FLECAINIDE
     Indication: WOLFF-PARKINSON-WHITE SYNDROME
     Dosage: 80 MILLIGRAM (TOTAL) 10?FOLD DOSING ERROR (80 MG INSTEAD OF 8 MG).
     Route: 065

REACTIONS (4)
  - Hypoxia [Recovered/Resolved]
  - Incorrect dose administered [Recovered/Resolved]
  - Arrhythmia [Recovered/Resolved]
  - Overdose [Recovered/Resolved]
